FAERS Safety Report 7603506-7 (Version None)
Quarter: 2011Q3

REPORT INFORMATION
  Report Type: 
  Country: None (occurrence: None)
  Receive Date: 20110711
  Receipt Date: 20110711
  Transmission Date: 20111222
  Serious: No
  Sender: FDA-Public Use
  Company Number: None

PATIENT
  Age: 17 Year

DRUGS (1)
  1. UPRIZING 2.0 [Suspect]

REACTIONS (4)
  - NAUSEA [None]
  - BACK PAIN [None]
  - ABDOMINAL PAIN [None]
  - BLOOD URINE PRESENT [None]
